FAERS Safety Report 6880023-3 (Version None)
Quarter: 2010Q3

REPORT INFORMATION
  Report Type: 
  Country: None (occurrence: None)
  Receive Date: 20100728
  Receipt Date: 20100719
  Transmission Date: 20110219
  Serious: Yes (Other)
  Sender: FDA-Public Use
  Company Number: US-ASTRAZENECA-2010SE33504

PATIENT
  Age: 19 Year
  Sex: Female

DRUGS (7)
  1. SEROQUEL [Suspect]
     Indication: BIPOLAR DISORDER
     Route: 048
  2. LEXAPRO [Suspect]
     Indication: DEPRESSION
     Route: 048
     Dates: end: 20100602
  3. LEXAPRO [Suspect]
     Route: 048
     Dates: start: 20100603, end: 20100605
  4. LEXAPRO [Suspect]
     Route: 048
     Dates: start: 20100606
  5. VICODIN [Suspect]
     Indication: BACK PAIN
     Route: 065
  6. XANAX [Suspect]
     Indication: ANXIETY
     Route: 065
  7. ALCOHOL [Suspect]
     Route: 065

REACTIONS (2)
  - ACCIDENTAL OVERDOSE [None]
  - MANIA [None]
